FAERS Safety Report 7340120-5 (Version None)
Quarter: 2011Q1

REPORT INFORMATION
  Report Type: 
  Country: None (occurrence: None)
  Receive Date: 20110309
  Receipt Date: 20110226
  Transmission Date: 20110831
  Serious: Yes (Hospitalization)
  Sender: FDA-Public Use
  Company Number: US-JNJFOC-20110301053

PATIENT
  Sex: Male

DRUGS (2)
  1. REMICADE [Suspect]
     Indication: PRODUCT USED FOR UNKNOWN INDICATION
     Dosage: TWO INFUSIONS
     Route: 042
  2. REMICADE [Suspect]
     Dosage: TWO INFUSIONS
     Route: 042

REACTIONS (3)
  - GASTROINTESTINAL NEOPLASM [None]
  - THERAPEUTIC RESPONSE UNEXPECTED [None]
  - HOSPITALISATION [None]
